FAERS Safety Report 9965822 (Version 1)
Quarter: 2014Q1

REPORT INFORMATION
  Report Type: Report from Study
  Country: US (occurrence: US)
  Receive Date: 20140305
  Receipt Date: 20140305
  Transmission Date: 20141002
  Serious: No
  Sender: FDA-Public Use
  Company Number: US-ABBVIE-13P-163-1124817-00

PATIENT
  Age: 30 Year
  Sex: Male

DRUGS (6)
  1. HUMIRA [Suspect]
     Indication: CROHN^S DISEASE
     Route: 058
     Dates: start: 201201
  2. FLUOXETINE [Concomitant]
     Indication: DEPRESSION
     Route: 048
  3. OMEPRAZOLE [Concomitant]
     Indication: DYSPEPSIA
     Route: 048
  4. LEVSIN [Concomitant]
     Indication: ABDOMINAL PAIN
     Route: 060
  5. ZOFRAN [Concomitant]
     Indication: NAUSEA
     Route: 048
  6. PHENERGAN [Concomitant]
     Indication: NAUSEA
     Route: 048

REACTIONS (5)
  - Hyperaesthesia [Not Recovered/Not Resolved]
  - Nausea [Unknown]
  - Vomiting [Unknown]
  - Respiratory tract congestion [Unknown]
  - Productive cough [Unknown]
